FAERS Safety Report 24895756 (Version 1)
Quarter: 2025Q1

REPORT INFORMATION
  Report Type: Spontaneous
  Country: KR (occurrence: KR)
  Receive Date: 20250128
  Receipt Date: 20250128
  Transmission Date: 20250408
  Serious: Yes (Other)
  Sender: ELI LILLY AND COMPANY
  Company Number: KR-ELI_LILLY_AND_COMPANY-KR202501012543

PATIENT
  Age: 68 Year
  Sex: Male
  Weight: 59 kg

DRUGS (1)
  1. CYRAMZA [Suspect]
     Active Substance: RAMUCIRUMAB
     Indication: Gastric cancer
     Route: 065
     Dates: start: 20240614, end: 20240614

REACTIONS (5)
  - Pruritus [Recovered/Resolved]
  - Dyspnoea [Recovered/Resolved]
  - Hypotension [Recovered/Resolved]
  - Dizziness [Recovered/Resolved]
  - Visual acuity reduced [Recovered/Resolved]

NARRATIVE: CASE EVENT DATE: 20240614
